FAERS Safety Report 5078188-1 (Version None)
Quarter: 2006Q3

REPORT INFORMATION
  Report Type: 
  Country: None (occurrence: None)
  Receive Date: 20060811
  Receipt Date: 20060803
  Transmission Date: 20061208
  Serious: Yes (Other)
  Sender: FDA-Public Use
  Company Number: 2006UW15586

PATIENT
  Age: 70 Year
  Sex: Female

DRUGS (2)
  1. TOPROL-XL [Suspect]
     Route: 048
     Dates: end: 20060701
  2. PLAVIX [Concomitant]

REACTIONS (1)
  - STEVENS-JOHNSON SYNDROME [None]
